FAERS Safety Report 4658261-X (Version None)
Quarter: 2005Q2

REPORT INFORMATION
  Report Type: 
  Country: None (occurrence: None)
  Receive Date: 20050509
  Receipt Date: 20050509
  Transmission Date: 20051028
  Serious: No
  Sender: FDA-Public Use
  Company Number: None

PATIENT

DRUGS (4)
  1. OXYTROL [Suspect]
     Dosage: FILM, EXTENDED RELEASE
  2. UROXATRAL [Suspect]
     Dosage: TABLET, EXTENDED RELEASE
  3. DITROPAN XL [Suspect]
     Dosage: TABLET, EXTENDED RELEASE
  4. DITROPAN [Suspect]
     Dosage: TABLET

REACTIONS (2)
  - INTERCEPTED MEDICATION ERROR [None]
  - MEDICATION ERROR [None]
